FAERS Safety Report 7865682-0 (Version None)
Quarter: 2011Q4

REPORT INFORMATION
  Report Type: 
  Country: None (occurrence: None)
  Receive Date: 20111028
  Receipt Date: 20110207
  Transmission Date: 20120403
  Serious: No
  Sender: FDA-Public Use
  Company Number: US-GLAXOSMITHKLINE-A0912261A

PATIENT
  Age: 77 Year
  Sex: Male

DRUGS (4)
  1. HEART MEDICATION [Concomitant]
  2. FUROSEMIDE [Concomitant]
     Dosage: 80MG PER DAY
  3. VITAMIN TAB [Concomitant]
  4. ADVAIR DISKUS 100/50 [Suspect]
     Indication: DYSPNOEA
     Dosage: 1PUFF TWICE PER DAY
     Route: 055
     Dates: start: 20100101

REACTIONS (5)
  - CHEST PAIN [None]
  - DYSPHONIA [None]
  - MYALGIA [None]
  - DRY MOUTH [None]
  - ILL-DEFINED DISORDER [None]
